FAERS Safety Report 10814103 (Version 1)
Quarter: 2015Q1

REPORT INFORMATION
  Report Type: Spontaneous
  Country: US (occurrence: US)
  Receive Date: 20150218
  Receipt Date: 20150218
  Transmission Date: 20150721
  Serious: No
  Sender: FDA-Public Use
  Company Number: US-ABBVIE-14K-163-1280794-00

PATIENT
  Age: 48 Year
  Sex: Female
  Weight: 57.66 kg

DRUGS (3)
  1. HUMIRA [Suspect]
     Active Substance: ADALIMUMAB
     Dates: start: 20140821, end: 20140821
  2. HUMIRA [Suspect]
     Active Substance: ADALIMUMAB
     Indication: CROHN^S DISEASE
     Dates: start: 20140807, end: 20140807
  3. HUMIRA [Suspect]
     Active Substance: ADALIMUMAB
     Dates: start: 20140904

REACTIONS (3)
  - Underdose [Unknown]
  - Device issue [Unknown]
  - Injection site urticaria [Not Recovered/Not Resolved]

NARRATIVE: CASE EVENT DATE: 20140904
